FAERS Safety Report 6921937-5 (Version None)
Quarter: 2010Q3

REPORT INFORMATION
  Report Type: 
  Country: None (occurrence: None)
  Receive Date: 20100812
  Receipt Date: 20100802
  Transmission Date: 20110219
  Serious: Yes (Hospitalization, Other)
  Sender: FDA-Public Use
  Company Number: BR-ABBOTT-10P-020-0618849-00

PATIENT
  Sex: Female
  Weight: 61 kg

DRUGS (11)
  1. HUMIRA [Suspect]
     Indication: CROHN'S DISEASE
     Route: 058
  2. HUMIRA [Suspect]
     Indication: RHEUMATOID ARTHRITIS
     Dates: start: 20091201
  3. HUMIRA [Suspect]
     Dosage: 160 MG LOADING DOSE
  4. HUMIRA [Suspect]
     Dosage: 80 MG LOADING DOSE
  5. LOPERAMIDE [Concomitant]
     Indication: DIARRHOEA
     Route: 048
  6. OMEPRAZOLE [Concomitant]
     Indication: PROPHYLAXIS AGAINST GASTROINTESTINAL ULCER
     Route: 048
     Dates: start: 19980101
  7. AZATHIOPRINE [Concomitant]
     Indication: IMMUNOSUPPRESSANT DRUG THERAPY
     Route: 048
     Dates: end: 20080101
  8. PARACETAMOL [Concomitant]
     Indication: PAIN
     Route: 048
  9. HYOSCINE/PARACETAMOL (BUSCOPAN PLUS) [Concomitant]
     Indication: GASTROINTESTINAL PAIN
     Route: 048
  10. CALCIUM [Concomitant]
     Indication: BONE DISORDER
     Route: 048
  11. FOLIC ACID [Concomitant]
     Indication: ANAEMIA
     Route: 048

REACTIONS (13)
  - ARTHRALGIA [None]
  - DRUG INEFFECTIVE [None]
  - GASTROINTESTINAL DISORDER [None]
  - JOINT EFFUSION [None]
  - JOINT SWELLING [None]
  - LOCAL SWELLING [None]
  - LOCALISED OEDEMA [None]
  - LYMPHADENITIS [None]
  - NODULE [None]
  - SWELLING [None]
  - THROMBOSIS [None]
  - VENA CAVA THROMBOSIS [None]
  - VENOUS OCCLUSION [None]
